FAERS Safety Report 8567469-2 (Version None)
Quarter: 2012Q3

REPORT INFORMATION
  Report Type: 
  Country: None (occurrence: None)
  Receive Date: 20120803
  Receipt Date: 20080912
  Transmission Date: 20120928
  Serious: Yes (Hospitalization, Other)
  Sender: FDA-Public Use
  Company Number: US-ROCHE-1094366

PATIENT
  Sex: Female

DRUGS (3)
  1. XOLAIR [Suspect]
  2. XOLAIR [Suspect]
     Indication: ASTHMA
  3. XOLAIR [Suspect]

REACTIONS (10)
  - PARANASAL SINUS HYPERSECRETION [None]
  - COUGH [None]
  - UPPER RESPIRATORY TRACT INFLAMMATION [None]
  - WEIGHT DECREASED [None]
  - DYSPNOEA [None]
  - LOWER RESPIRATORY TRACT INFLAMMATION [None]
  - WHEEZING [None]
  - SINUS HEADACHE [None]
  - SINUS CONGESTION [None]
  - LOCAL SWELLING [None]
